FAERS Safety Report 16269986 (Version 1)
Quarter: 2019Q2

REPORT INFORMATION
  Report Type: Spontaneous
  Country: CH (occurrence: CH)
  Receive Date: 20190503
  Receipt Date: 20190503
  Transmission Date: 20190711
  Serious: Yes (Hospitalization, Other)
  Sender: FDA-Public Use
  Company Number: CH-009507513-1904CHE013313

PATIENT
  Weight: 103 kg

DRUGS (2)
  1. PEMBROLIZUMAB. [Suspect]
     Active Substance: PEMBROLIZUMAB
     Indication: MALIGNANT MELANOMA STAGE IV
     Dosage: 200 MILLIGRAM, Q3W
     Dates: start: 20151124, end: 20190117
  2. PEMBROLIZUMAB. [Suspect]
     Active Substance: PEMBROLIZUMAB
     Dosage: 200 MILLIGRAM, Q3W
     Dates: start: 201902

REACTIONS (15)
  - Normochromic normocytic anaemia [Unknown]
  - Rosacea [Unknown]
  - Malignant neoplasm progression [Unknown]
  - Cataract [Not Recovered/Not Resolved]
  - Demyelinating polyneuropathy [Unknown]
  - Haemangioma [Unknown]
  - Arthritis [Recovered/Resolved]
  - Sinusitis [Recovering/Resolving]
  - Immune-mediated adverse reaction [Recovering/Resolving]
  - Renal impairment [Unknown]
  - Hypertension [Not Recovered/Not Resolved]
  - Macular fibrosis [Not Recovered/Not Resolved]
  - Troponin T increased [Unknown]
  - Tinea pedis [Unknown]
  - Actinic keratosis [Unknown]

NARRATIVE: CASE EVENT DATE: 20151214
